FAERS Safety Report 24680332 (Version 1)
Quarter: 2024Q4

REPORT INFORMATION
  Report Type: Spontaneous
  Country: DE (occurrence: DE)
  Receive Date: 20241129
  Receipt Date: 20241129
  Transmission Date: 20250115
  Serious: Yes (Other)
  Sender: RANBAXY
  Company Number: DE-ALMIRALL-DE-2024-2846

PATIENT
  Age: 47 Year
  Sex: Male
  Weight: 110 kg

DRUGS (1)
  1. TILDRAKIZUMAB [Suspect]
     Active Substance: TILDRAKIZUMAB
     Indication: Psoriasis
     Dosage: 100 MILLIGRAM, ONCE IN EVERY 12 WEEKS SUBCUTANEOUSLY
     Route: 058
     Dates: start: 202002, end: 20241002

REACTIONS (1)
  - Non-small cell lung cancer [Not Recovered/Not Resolved]
